FAERS Safety Report 10186663 (Version 1)
Quarter: 2014Q2

REPORT INFORMATION
  Report Type: Spontaneous
  Country: GB (occurrence: GB)
  Receive Date: 20140521
  Receipt Date: 20140521
  Transmission Date: 20141212
  Serious: Yes (Other)
  Sender: FDA-Public Use
  Company Number: GB-MYLANLABS-2014S1010770

PATIENT
  Age: 67 Year
  Sex: Female
  Weight: 97.5 kg

DRUGS (4)
  1. BISOPROLOL [Suspect]
     Indication: LEFT VENTRICULAR FAILURE
     Dosage: UP TITRATED FROM 2.5 MG TO 5.0MG
     Route: 048
  2. BISOPROLOL [Suspect]
     Indication: LEFT VENTRICULAR FAILURE
     Dosage: UP TITRATED FROM 2.5 MG TO 5.0MG
     Route: 048
     Dates: start: 20140418, end: 20140421
  3. FUROSEMIDE [Concomitant]
  4. RAMIPRIL [Concomitant]

REACTIONS (1)
  - Swelling face [Recovered/Resolved]
